FAERS Safety Report 4447073-8 (Version None)
Quarter: 2004Q3

REPORT INFORMATION
  Report Type: 
  Country: None (occurrence: None)
  Receive Date: 20040813
  Receipt Date: 20040504
  Transmission Date: 20050211
  Serious: No
  Sender: FDA-Public Use
  Company Number: S04-USA-03569-01

PATIENT
  Age: 93 Year
  Sex: Female

DRUGS (11)
  1. NAMENDA [Suspect]
     Indication: DEMENTIA
     Dosage: 10 MG QD PO
     Route: 048
     Dates: start: 20040407, end: 20040413
  2. NAMENDA [Suspect]
     Indication: DEMENTIA
     Dosage: 15 MG QD PO
     Route: 048
     Dates: start: 20040414, end: 20040420
  3. NAMENDA [Suspect]
     Indication: DEMENTIA
     Dosage: 20 MG QD PO
     Route: 048
     Dates: start: 20040421
  4. NAMENDA [Suspect]
     Indication: DEMENTIA
     Dosage: 5 MG QD PO
     Route: 048
     Dates: start: 20040331, end: 20040406
  5. AMIODARONE [Concomitant]
  6. LISINOPRIL [Concomitant]
  7. PLAVIX [Concomitant]
  8. FUROSEMIDE [Concomitant]
  9. DIGOXIN [Concomitant]
  10. PAXIL [Concomitant]
  11. ISOSORBIDE [Concomitant]

REACTIONS (3)
  - HALLUCINATION [None]
  - INSOMNIA [None]
  - SLEEP TALKING [None]
